FAERS Safety Report 24653418 (Version 2)
Quarter: 2024Q4

REPORT INFORMATION
  Report Type: Spontaneous
  Country: US (occurrence: US)
  Receive Date: 20241122
  Receipt Date: 20241127
  Transmission Date: 20250114
  Serious: Yes (Other)
  Sender: PFIZER
  Company Number: US-MLMSERVICE-20241114-PI254512-00182-6

PATIENT
  Age: 65 Year
  Sex: Male

DRUGS (1)
  1. IRINOTECAN HYDROCHLORIDE [Suspect]
     Active Substance: IRINOTECAN HYDROCHLORIDE
     Indication: Colon cancer metastatic
     Dosage: UNK
     Route: 042

REACTIONS (2)
  - Rash erythematous [Recovered/Resolved]
  - Urticaria [Recovered/Resolved]
